FAERS Safety Report 5483879-4 (Version None)
Quarter: 2007Q4

REPORT INFORMATION
  Report Type: 
  Country: None (occurrence: None)
  Receive Date: 20071009
  Receipt Date: 20070920
  Transmission Date: 20080405
  Serious: Yes (Death, Life-Threatening)
  Sender: FDA-Public Use
  Company Number: DSA_30669_2007

PATIENT
  Sex: Female

DRUGS (8)
  1. TEMESTA (TEMESTA - LORAZEPAM) (NOT SPECIFIED) VENLAFAXINE HYDROCHLORID [Suspect]
     Indication: DRUG USE FOR UNKNOWN INDICATION
     Dosage: 4 MG QD ORAL, 6MG  QD ORAL, 5 MG QD ORAL, 2 MG QD ORAL
     Route: 048
     Dates: start: 20060810, end: 20060925
  2. TEMESTA (TEMESTA - LORAZEPAM) (NOT SPECIFIED) VENLAFAXINE HYDROCHLORID [Suspect]
     Indication: DRUG USE FOR UNKNOWN INDICATION
     Dosage: 4 MG QD ORAL, 6MG  QD ORAL, 5 MG QD ORAL, 2 MG QD ORAL
     Route: 048
     Dates: start: 20060926, end: 20060926
  3. TEMESTA (TEMESTA - LORAZEPAM) (NOT SPECIFIED) VENLAFAXINE HYDROCHLORID [Suspect]
     Indication: DRUG USE FOR UNKNOWN INDICATION
     Dosage: 4 MG QD ORAL, 6MG  QD ORAL, 5 MG QD ORAL, 2 MG QD ORAL
     Route: 048
     Dates: start: 20060927, end: 20060927
  4. TEMESTA (TEMESTA - LORAZEPAM) (NOT SPECIFIED) VENLAFAXINE HYDROCHLORID [Suspect]
     Indication: DRUG USE FOR UNKNOWN INDICATION
     Dosage: 4 MG QD ORAL, 6MG  QD ORAL, 5 MG QD ORAL, 2 MG QD ORAL
     Route: 048
     Dates: start: 20060928, end: 20061001
  5. EFFEXOR [Suspect]
     Indication: ILL-DEFINED DISORDER
     Dosage: 75 MG QD IRAKM 37.5 MG QD ORAL
     Route: 048
     Dates: start: 20060927, end: 20060927
  6. EFFEXOR [Suspect]
     Indication: ILL-DEFINED DISORDER
     Dosage: 75 MG QD IRAKM 37.5 MG QD ORAL
     Route: 048
     Dates: start: 20060928, end: 20061001
  7. REMERON [Suspect]
     Dosage: 30 MG QD ORAL
     Route: 048
     Dates: start: 20060810, end: 20061001
  8. STILNOX /00914901/ (STILNOX - ZOLPIDEM) 10MG [Suspect]
     Dosage: 10 MG QD ORAL
     Route: 048
     Dates: start: 20060922, end: 20061001

REACTIONS (1)
  - COMPLETED SUICIDE [None]
